FAERS Safety Report 9760330 (Version 1)
Quarter: 2013Q4

REPORT INFORMATION
  Report Type: Spontaneous
  Country: US (occurrence: US)
  Receive Date: 20131216
  Receipt Date: 20131216
  Transmission Date: 20140711
  Serious: No
  Sender: FDA-Public Use
  Company Number: US-GILEAD-2010-0029296

PATIENT
  Age: 71 Year
  Sex: Female
  Weight: 114 kg

DRUGS (15)
  1. LETAIRIS [Suspect]
     Indication: PULMONARY ARTERIAL HYPERTENSION
     Route: 048
     Dates: start: 20091116
  2. COLACE [Concomitant]
  3. CATAPRES-TTS [Concomitant]
  4. LEXAPRO [Concomitant]
  5. KLOR-CON [Concomitant]
  6. NEXIUM [Concomitant]
  7. VITAMIN B-6 [Concomitant]
  8. VITAMIN B-12 [Concomitant]
  9. FOLIC ACID [Concomitant]
  10. VIAGRA [Concomitant]
  11. CENTRUM SILVER [Concomitant]
  12. TIMOPTIC XE [Concomitant]
  13. LASIX [Concomitant]
  14. COUMADIN [Concomitant]
  15. NORVASC [Concomitant]

REACTIONS (3)
  - Myalgia [Unknown]
  - Fluid retention [Unknown]
  - Local swelling [Unknown]
